FAERS Safety Report 25724572 (Version 1)
Quarter: 2025Q3

REPORT INFORMATION
  Report Type: Spontaneous
  Country: US (occurrence: US)
  Receive Date: 20250826
  Receipt Date: 20250826
  Transmission Date: 20251020
  Serious: No
  Sender: ELI LILLY AND COMPANY
  Company Number: US-ELI_LILLY_AND_COMPANY-US202508015120

PATIENT
  Age: 60 Year
  Sex: Male

DRUGS (13)
  1. MOUNJARO [Suspect]
     Active Substance: TIRZEPATIDE
     Indication: Type 2 diabetes mellitus
     Dosage: UNK, WEEKLY (1/W)
     Route: 065
     Dates: start: 20230104
  2. MOUNJARO [Suspect]
     Active Substance: TIRZEPATIDE
     Indication: Type 2 diabetes mellitus
     Dosage: UNK, WEEKLY (1/W)
     Route: 065
     Dates: start: 20230104
  3. MOUNJARO [Suspect]
     Active Substance: TIRZEPATIDE
     Indication: Type 2 diabetes mellitus
     Dosage: UNK, WEEKLY (1/W)
     Route: 065
     Dates: start: 20230104
  4. MOUNJARO [Suspect]
     Active Substance: TIRZEPATIDE
     Indication: Type 2 diabetes mellitus
     Dosage: UNK, WEEKLY (1/W)
     Route: 065
     Dates: start: 20230104
  5. MOUNJARO [Suspect]
     Active Substance: TIRZEPATIDE
     Dosage: 10 MG, WEEKLY (1/W)
     Route: 065
     Dates: end: 20250814
  6. MOUNJARO [Suspect]
     Active Substance: TIRZEPATIDE
     Dosage: 10 MG, WEEKLY (1/W)
     Route: 065
     Dates: end: 20250814
  7. MOUNJARO [Suspect]
     Active Substance: TIRZEPATIDE
     Dosage: 10 MG, WEEKLY (1/W)
     Route: 065
     Dates: end: 20250814
  8. MOUNJARO [Suspect]
     Active Substance: TIRZEPATIDE
     Dosage: 10 MG, WEEKLY (1/W)
     Route: 065
     Dates: end: 20250814
  9. MOUNJARO [Suspect]
     Active Substance: TIRZEPATIDE
     Indication: Type 2 diabetes mellitus
     Dosage: 12.5 MG, WEEKLY (1/W)
     Route: 065
     Dates: end: 20250814
  10. MOUNJARO [Suspect]
     Active Substance: TIRZEPATIDE
     Indication: Type 2 diabetes mellitus
     Dosage: 12.5 MG, WEEKLY (1/W)
     Route: 065
     Dates: end: 20250814
  11. MOUNJARO [Suspect]
     Active Substance: TIRZEPATIDE
     Indication: Type 2 diabetes mellitus
     Dosage: 12.5 MG, WEEKLY (1/W)
     Route: 065
     Dates: end: 20250814
  12. MOUNJARO [Suspect]
     Active Substance: TIRZEPATIDE
     Indication: Type 2 diabetes mellitus
     Dosage: 12.5 MG, WEEKLY (1/W)
     Route: 065
     Dates: end: 20250814
  13. METFORMIN [Concomitant]
     Active Substance: METFORMIN HYDROCHLORIDE
     Indication: Product used for unknown indication
     Route: 065

REACTIONS (4)
  - Vision blurred [Unknown]
  - Wrong patient received product [Unknown]
  - Glycosylated haemoglobin increased [Unknown]
  - Drug ineffective [Unknown]

NARRATIVE: CASE EVENT DATE: 20250701
